APPROVED DRUG PRODUCT: DECLOMYCIN
Active Ingredient: DEMECLOCYCLINE HYDROCHLORIDE
Strength: 75MG/5ML
Dosage Form/Route: SYRUP;ORAL
Application: N050257 | Product #001
Applicant: LEDERLE LABORATORIES DIV AMERICAN CYANAMID CO
Approved: Approved Prior to Jan 1, 1982 | RLD: No | RS: No | Type: DISCN